FAERS Safety Report 10979233 (Version 1)
Quarter: 2015Q2

REPORT INFORMATION
  Report Type: Spontaneous
  Country: US (occurrence: US)
  Receive Date: 20150402
  Receipt Date: 20150402
  Transmission Date: 20150821
  Serious: Yes (Other)
  Sender: FDA-Public Use
  Company Number: US-JNJFOC-20150321514

PATIENT
  Age: 28 Year
  Sex: Female

DRUGS (3)
  1. REMICADE [Suspect]
     Active Substance: INFLIXIMAB
     Indication: COLITIS ULCERATIVE
     Route: 042
     Dates: start: 20140707
  2. 6-MP [Concomitant]
     Active Substance: MERCAPTOPURINE
     Route: 065
  3. REMICADE [Suspect]
     Active Substance: INFLIXIMAB
     Indication: COLITIS ULCERATIVE
     Route: 042
     Dates: start: 20140718

REACTIONS (6)
  - Thrombosis in device [Unknown]
  - Adverse drug reaction [Unknown]
  - Mental status changes [Unknown]
  - Haemolytic anaemia [Unknown]
  - Renal failure [Unknown]
  - Thrombocytopenia [Unknown]

NARRATIVE: CASE EVENT DATE: 20140719
